FAERS Safety Report 7588983-2 (Version None)
Quarter: 2011Q3

REPORT INFORMATION
  Report Type: 
  Country: None (occurrence: None)
  Receive Date: 20110705
  Receipt Date: 20110621
  Transmission Date: 20111222
  Serious: Yes (Hospitalization, Other)
  Sender: FDA-Public Use
  Company Number: PHHY2011CZ55075

PATIENT
  Age: 46 Year
  Sex: Male

DRUGS (4)
  1. HYDROCORTISONE [Suspect]
     Dosage: 60 MG, DAILY
  2. METHYLPREDNISOLONE [Suspect]
     Indication: SCHNITZLER'S SYNDROME
     Dosage: 16 MG X 3
     Route: 048
  3. HYDROCORTISONE [Suspect]
     Dosage: 30 MG, DAILY
  4. HYDROCORTISONE [Suspect]
     Dosage: 20 MG, DAILY

REACTIONS (13)
  - MONOCLONAL GAMMOPATHY [None]
  - PITUITARY-DEPENDENT CUSHING'S SYNDROME [None]
  - SKIN DISCOLOURATION [None]
  - EYE IRRITATION [None]
  - HAEMATOMA [None]
  - OEDEMA PERIPHERAL [None]
  - WEIGHT ABNORMAL [None]
  - MUSCULAR WEAKNESS [None]
  - POLLAKIURIA [None]
  - ACNE [None]
  - HYPERTENSION [None]
  - MYOPATHY [None]
  - POLYNEUROPATHY [None]
